FAERS Safety Report 5093420-6 (Version None)
Quarter: 2006Q3

REPORT INFORMATION
  Report Type: 
  Country: None (occurrence: None)
  Receive Date: 20060829
  Receipt Date: 20060814
  Transmission Date: 20061208
  Serious: Yes (Other)
  Sender: FDA-Public Use
  Company Number: SPV1-2006-00460

PATIENT
  Age: 36 Year
  Sex: Male

DRUGS (7)
  1. CARBAMAZEPINE [Suspect]
     Indication: CONVULSION
     Dosage: 600 MG DAILY
  2. ZIDOVUDINE [Concomitant]
  3. ZALCITABINE [Concomitant]
  4. PHENYTOIN [Concomitant]
  5. STAVUDINE [Concomitant]
  6. LAMIVUDINE [Concomitant]
  7. INDINIVIR SULFATE [Concomitant]

REACTIONS (7)
  - ANTICONVULSANT DRUG LEVEL INCREASED [None]
  - CONDITION AGGRAVATED [None]
  - DIZZINESS [None]
  - DRUG INTERACTION [None]
  - DRUG TOXICITY [None]
  - GAIT DISTURBANCE [None]
  - HEMIPARESIS [None]
